FAERS Safety Report 11932862 (Version 2)
Quarter: 2016Q3

REPORT INFORMATION
  Report Type: Report from Study
  Country: US (occurrence: US)
  Receive Date: 20160120
  Receipt Date: 20160913
  Transmission Date: 20161109
  Serious: Yes (Other)
  Sender: FDA-Public Use
  Company Number: US-GILEAD-2016-0193433

PATIENT
  Age: 71 Year
  Sex: Female

DRUGS (1)
  1. AMBRISENTAN [Suspect]
     Active Substance: AMBRISENTAN
     Indication: PRODUCT USED FOR UNKNOWN INDICATION
     Dosage: 10 MG, QD
     Route: 065
     Dates: start: 20151005

REACTIONS (6)
  - Platelet count decreased [Unknown]
  - Peripheral swelling [Not Recovered/Not Resolved]
  - Epistaxis [Unknown]
  - Tremor [Unknown]
  - Hepatic cirrhosis [Unknown]
  - Arthralgia [Unknown]
